FAERS Safety Report 6921504-3 (Version None)
Quarter: 2010Q3

REPORT INFORMATION
  Report Type: 
  Country: None (occurrence: None)
  Receive Date: 20100812
  Receipt Date: 20100804
  Transmission Date: 20110219
  Serious: Yes (Hospitalization, Other)
  Sender: FDA-Public Use
  Company Number: PHHO2010DE10942

PATIENT
  Sex: Female
  Weight: 80 kg

DRUGS (4)
  1. SIMULECT [Interacting]
     Indication: RENAL TRANSPLANT
     Dosage: 60 MG, UNK
     Route: 042
     Dates: start: 20100617
  2. CYCLOSPORINE [Interacting]
     Indication: RENAL TRANSPLANT
     Route: 048
  3. NO TREATMENT RECEIVED NOMED [Suspect]
     Indication: RENAL TRANSPLANT
     Dosage: NO TREATMENT
  4. ISONIAZID [Suspect]

REACTIONS (6)
  - BLOOD CREATININE INCREASED [None]
  - CYTOMEGALOVIRUS INFECTION [None]
  - DRUG INTERACTION [None]
  - DRUG LEVEL INCREASED [None]
  - KIDNEY TRANSPLANT REJECTION [None]
  - URINARY TRACT INFECTION [None]
